FAERS Safety Report 12957376 (Version 2)
Quarter: 2017Q1

REPORT INFORMATION
  Report Type: Spontaneous
  Country: US (occurrence: US)
  Receive Date: 20161118
  Receipt Date: 20170201
  Transmission Date: 20170428
  Serious: Yes (Hospitalization, Disabling, Other)
  Sender: FDA-Public Use
  Company Number: US-ALLERGAN-1676612US

PATIENT
  Age: 67 Year
  Sex: Female
  Weight: 98.88 kg

DRUGS (16)
  1. LEXAPRO [Suspect]
     Active Substance: ESCITALOPRAM OXALATE
     Indication: PAIN
     Dosage: UNK
     Route: 065
  2. REVERT [Concomitant]
     Indication: PAIN
  3. ANTIVERT [Concomitant]
     Active Substance: MECLIZINE HYDROCHLORIDE
     Indication: PAIN
  4. MEDROL [Concomitant]
     Active Substance: METHYLPREDNISOLONE
     Indication: MULTIPLE SCLEROSIS
  5. VICODIN [Concomitant]
     Active Substance: ACETAMINOPHEN\HYDROCODONE BITARTRATE
     Indication: PAIN
  6. LYRICA [Concomitant]
     Active Substance: PREGABALIN
     Indication: MULTIPLE SCLEROSIS
  7. XANAX [Concomitant]
     Active Substance: ALPRAZOLAM
     Indication: MULTIPLE SCLEROSIS
     Dosage: 0.5 MG, TID
     Dates: end: 201601
  8. HYDROCODONE [Concomitant]
     Active Substance: HYDROCODONE
     Indication: NEURALGIA
     Dosage: 7.5 MG, UNK
  9. MEDROL [Concomitant]
     Active Substance: METHYLPREDNISOLONE
     Indication: PAIN
  10. REVERT [Concomitant]
     Indication: MULTIPLE SCLEROSIS
  11. LYRICA [Concomitant]
     Active Substance: PREGABALIN
     Indication: PAIN
  12. VICODIN [Concomitant]
     Active Substance: ACETAMINOPHEN\HYDROCODONE BITARTRATE
     Indication: MULTIPLE SCLEROSIS
  13. ALPRAZOLAM. [Concomitant]
     Active Substance: ALPRAZOLAM
     Indication: PRODUCT USED FOR UNKNOWN INDICATION
  14. LEXAPRO [Suspect]
     Active Substance: ESCITALOPRAM OXALATE
     Indication: MULTIPLE SCLEROSIS
  15. ANTIVERT [Concomitant]
     Active Substance: MECLIZINE HYDROCHLORIDE
     Indication: MULTIPLE SCLEROSIS
  16. XANAX [Concomitant]
     Active Substance: ALPRAZOLAM
     Indication: SPINAL FUSION SURGERY

REACTIONS (6)
  - Off label use [Unknown]
  - Blood pressure increased [Not Recovered/Not Resolved]
  - Weight increased [Not Recovered/Not Resolved]
  - Drug ineffective [Unknown]
  - Oxygen saturation decreased [Unknown]
  - Abasia [Not Recovered/Not Resolved]
